FAERS Safety Report 24633264 (Version 2)
Quarter: 2024Q4

REPORT INFORMATION
  Report Type: Spontaneous
  Country: US (occurrence: US)
  Receive Date: 20241118
  Receipt Date: 20241229
  Transmission Date: 20250114
  Serious: No
  Sender: SANOFI AVENTIS
  Company Number: US-SA-2024SA328866

PATIENT
  Age: 36 Year
  Sex: Female
  Weight: 77.73 kg

DRUGS (1)
  1. KEVZARA [Suspect]
     Active Substance: SARILUMAB
     Indication: Rheumatoid arthritis
     Dosage: 200 MG, QOW
     Route: 058
     Dates: start: 20241027

REACTIONS (6)
  - Pain [Unknown]
  - Neck pain [Unknown]
  - Pharyngitis streptococcal [Unknown]
  - Injection site warmth [Recovered/Resolved]
  - Injection site erythema [Unknown]
  - Injection site pruritus [Recovered/Resolved]

NARRATIVE: CASE EVENT DATE: 20240101
